FAERS Safety Report 17718219 (Version 2)
Quarter: 2020Q2

REPORT INFORMATION
  Report Type: Spontaneous
  Country: US (occurrence: US)
  Receive Date: 20200428
  Receipt Date: 20200430
  Transmission Date: 20200714
  Serious: Yes (Hospitalization, Other)
  Sender: FDA-Public Use
  Company Number: US-PFIZER INC-2020166349

PATIENT
  Age: 67 Year
  Sex: Female
  Weight: 61.23 kg

DRUGS (1)
  1. PREMPRO [Suspect]
     Active Substance: ESTROGENS, CONJUGATED\MEDROXYPROGESTERONE ACETATE
     Indication: MENOPAUSAL SYMPTOMS
     Dosage: 1 TABLET, ONCE DAILY
     Route: 048

REACTIONS (4)
  - Product dose omission [Unknown]
  - Suicidal ideation [Unknown]
  - Drug dependence [Unknown]
  - Nervousness [Unknown]
